FAERS Safety Report 10957716 (Version 5)
Quarter: 2015Q2

REPORT INFORMATION
  Report Type: Spontaneous
  Country: GB (occurrence: GB)
  Receive Date: 20150326
  Receipt Date: 20150529
  Transmission Date: 20150821
  Serious: Yes (Death, Hospitalization, Other)
  Sender: FDA-Public Use
  Company Number: GB-PFIZER INC-2015100609

PATIENT
  Age: 70 Year
  Sex: Male
  Weight: 72 kg

DRUGS (6)
  1. AVASTIN [Suspect]
     Active Substance: BEVACIZUMAB
     Indication: ADENOCARCINOMA GASTRIC
     Dosage: 537.5 MG, UNK (LAST DOSE PRIOR TO SAE: 11JUN2010 LAST DOSE PRIOR TO ABDOMINAL PAIN: 02NOV2009)
     Route: 042
     Dates: start: 20090911
  2. CISPLATIN. [Suspect]
     Active Substance: CISPLATIN
     Indication: ADENOCARCINOMA GASTRIC
     Dosage: 120 MG, UNK (LAST DOSE ON 02NOV2009)
     Route: 042
     Dates: start: 20090911
  3. EPIRUBICIN HCL [Suspect]
     Active Substance: EPIRUBICIN HYDROCHLORIDE
     Indication: ADENOCARCINOMA GASTRIC
     Dosage: 100 MG, UNK (LAST DOSE ON 02NOV2009)
     Route: 042
     Dates: start: 20090911
  4. AVASTIN [Suspect]
     Active Substance: BEVACIZUMAB
     Dosage: UNK
     Route: 042
  5. XELODA [Suspect]
     Active Substance: CAPECITABINE
     Indication: ADENOCARCINOMA GASTRIC
     Dosage: 2.5 (UNIT NOT REPORTED) DOSE: 35000 UNITS. (LAST DOSE PRIOR TO SAE: 02NOV2009)
     Route: 048
  6. XELODA [Suspect]
     Active Substance: CAPECITABINE
     Dosage: 52500, UNK (LAST DOSE PRIOR TO SAE 02NOV2009)
     Route: 048

REACTIONS (5)
  - Abdominal adhesions [Unknown]
  - Abdominal pain [Fatal]
  - Abdominal pain [Recovered/Resolved]
  - Retching [Unknown]
  - Nausea [Unknown]

NARRATIVE: CASE EVENT DATE: 20100316
